FAERS Safety Report 7921204-7 (Version None)
Quarter: 2011Q4

REPORT INFORMATION
  Report Type: 
  Country: None (occurrence: None)
  Receive Date: 20111117
  Receipt Date: 20111111
  Transmission Date: 20120403
  Serious: Yes (Other)
  Sender: FDA-Public Use
  Company Number: US-ABBOTT-11P-163-0869364-00

PATIENT
  Age: 31 Year
  Sex: Male

DRUGS (1)
  1. HUMIRA [Suspect]
     Indication: CROHN'S DISEASE

REACTIONS (9)
  - PORTAL HYPERTENSION [None]
  - ASCITES [None]
  - HEPATIC CIRRHOSIS [None]
  - HEPATOPULMONARY SYNDROME [None]
  - HEPATITIS B [None]
  - RESPIRATORY DISORDER [None]
  - CHRONIC HEPATIC FAILURE [None]
  - ABDOMINAL WOUND DEHISCENCE [None]
  - SCAR [None]
